FAERS Safety Report 17466315 (Version 1)
Quarter: 2020Q1

REPORT INFORMATION
  Report Type: Spontaneous
  Country: US (occurrence: US)
  Receive Date: 20200227
  Receipt Date: 20200227
  Transmission Date: 20200409
  Serious: Yes (Other)
  Sender: FDA-Public Use
  Company Number: US-ASTRAZENECA-2020SE27482

PATIENT

DRUGS (1)
  1. SYNAGIS [Suspect]
     Active Substance: PALIVIZUMAB
     Dosage: 108MG (NOV-2019), 108MG (15-JAN-2020)
     Route: 030
     Dates: start: 201911

REACTIONS (4)
  - Pyrexia [Unknown]
  - Influenza like illness [Unknown]
  - Feeding disorder [Unknown]
  - Irritability [Unknown]
